FAERS Safety Report 6244024-0 (Version None)
Quarter: 2009Q2

REPORT INFORMATION
  Report Type: 
  Country: None (occurrence: None)
  Receive Date: 20090623
  Receipt Date: 20090615
  Transmission Date: 20091009
  Serious: Yes (Death, Other)
  Sender: FDA-Public Use
  Company Number: 2009007341

PATIENT

DRUGS (2)
  1. TREANDA [Suspect]
     Dosage: (70 MG/M2, DAYS 1 AND 2 OF A 28 DAY CYCLE), INTRAVENOUS (NOT OTHERWISE SPECIFIED)
  2. RITUXIMAB (RITUXIMAB) [Suspect]
     Dosage: (375 MG/M2, CYCLE 1), INTRAVENOUS; (500 MG/M2), INTRAVENOUS (NOT OTHERWISE SPECIFIED)
     Route: 042

REACTIONS (9)
  - ANAEMIA [None]
  - DISEASE PROGRESSION [None]
  - INFECTION [None]
  - LEUKOPENIA [None]
  - NEUTROPENIA [None]
  - PNEUMONIA [None]
  - SEPSIS [None]
  - THROMBOCYTOPENIA [None]
  - UROSEPSIS [None]
